FAERS Safety Report 18233675 (Version 1)
Quarter: 2020Q3

REPORT INFORMATION
  Report Type: Report from Study
  Country: US (occurrence: US)
  Receive Date: 20200904
  Receipt Date: 20200904
  Transmission Date: 20201103
  Serious: Yes (Hospitalization, Other)
  Sender: FDA-Public Use
  Company Number: US-GILEAD-2020-0493660

PATIENT
  Age: 34 Year
  Sex: Male

DRUGS (2)
  1. BICTEGRAVIR W/EMTRICITABINE/TENOFOVIR ALAFENAMIDE [Suspect]
     Active Substance: BICTEGRAVIR\EMTRICITABINE\TENOFOVIR ALAFENAMIDE
     Indication: HIV INFECTION
     Dosage: 30 QUANT 30 DS 50 MG
     Route: 065
  2. GENVOYA [Concomitant]
     Active Substance: COBICISTAT\ELVITEGRAVIR\EMTRICITABINE\TENOFOVIR ALAFENAMIDE FUMARATE

REACTIONS (6)
  - Transfusion [Recovering/Resolving]
  - Haemorrhage [Recovering/Resolving]
  - Dyspnoea [Recovering/Resolving]
  - Kidney infection [Recovering/Resolving]
  - Decreased appetite [Recovering/Resolving]
  - Dialysis [Recovering/Resolving]
